FAERS Safety Report 17542079 (Version 1)
Quarter: 2020Q1

REPORT INFORMATION
  Report Type: Spontaneous
  Country: FR (occurrence: FR)
  Receive Date: 20200313
  Receipt Date: 20200313
  Transmission Date: 20200409
  Serious: Yes (Life-Threatening)
  Sender: FDA-Public Use
  Company Number: FR-CANTON LABORATORIES, LLC-2081617

PATIENT
  Age: 40 Year
  Sex: Female

DRUGS (8)
  1. SUCCINATE DE DOXYLAMINE (DOXYLAMINE HYDROGEN SUCCINATE) [Suspect]
     Active Substance: DOXYLAMINE SUCCINATE
     Route: 048
     Dates: start: 20200120, end: 20200120
  2. CODEINE (CODEINE) [Suspect]
     Active Substance: CODEINE
     Route: 048
     Dates: start: 20200120, end: 20200120
  3. ALPRAZOLAM. [Suspect]
     Active Substance: ALPRAZOLAM
  4. ESCITALOPRAM [Suspect]
     Active Substance: ESCITALOPRAM OXALATE
     Route: 048
     Dates: start: 20200120, end: 20200120
  5. NAPROSYN [Suspect]
     Active Substance: NAPROXEN
     Indication: PRODUCT USED FOR UNKNOWN INDICATION
     Route: 048
     Dates: start: 20200120
  6. OXAZEPAM. [Suspect]
     Active Substance: OXAZEPAM
     Route: 048
     Dates: start: 20200120, end: 20200120
  7. PARACETAMOL (PARACETAMOL) [Suspect]
     Active Substance: ACETAMINOPHEN
     Route: 048
     Dates: start: 20200120, end: 20200120
  8. EBASTINE (EBASTINE) [Suspect]
     Active Substance: EBASTINE
     Route: 048
     Dates: start: 20200120, end: 20200120

REACTIONS (4)
  - Coma [Recovered/Resolved]
  - Hepatic failure [Recovering/Resolving]
  - Toxicity to various agents [Unknown]
  - Mixed liver injury [Recovering/Resolving]

NARRATIVE: CASE EVENT DATE: 20200120
